FAERS Safety Report 23800703 (Version 1)
Quarter: 2024Q2

REPORT INFORMATION
  Report Type: Spontaneous
  Country: AU (occurrence: AU)
  Receive Date: 20240430
  Receipt Date: 20240430
  Transmission Date: 20240715
  Serious: Yes (Hospitalization, Other)
  Sender: FDA-Public Use
  Company Number: AU-JNJFOC-20240466592

PATIENT
  Age: 28 Year
  Sex: Male

DRUGS (10)
  1. REMICADE [Suspect]
     Active Substance: INFLIXIMAB
     Indication: Colitis ulcerative
     Route: 041
  2. REMICADE [Suspect]
     Active Substance: INFLIXIMAB
     Route: 041
  3. REMICADE [Suspect]
     Active Substance: INFLIXIMAB
     Dosage: 400 MG
     Route: 041
  4. SIMPONI [Suspect]
     Active Substance: GOLIMUMAB
     Indication: Colitis ulcerative
     Route: 058
  5. AZATHIOPRINE [Suspect]
     Active Substance: AZATHIOPRINE
     Indication: Colitis ulcerative
  6. ASPIRIN [Suspect]
     Active Substance: ASPIRIN
     Indication: Colitis ulcerative
  7. HYDROCORTISONE [Concomitant]
     Active Substance: HYDROCORTISONE
     Dosage: QID
     Route: 042
  8. PREDNISOLONE [Concomitant]
     Active Substance: PREDNISOLONE
     Dosage: PLANNED FOR 10MG WEAN OF PREDNISOLONE EVERY 5 DAYS UNTIL 0MG.
  9. PREDNISOLONE [Concomitant]
     Active Substance: PREDNISOLONE
  10. IRON [Concomitant]
     Active Substance: IRON

REACTIONS (4)
  - Hospitalisation [Unknown]
  - Colitis ulcerative [Unknown]
  - Drug ineffective [Unknown]
  - Yersinia infection [Unknown]
